FAERS Safety Report 6643920-X (Version None)
Quarter: 2010Q1

REPORT INFORMATION
  Report Type: 
  Country: None (occurrence: None)
  Receive Date: 20100322
  Receipt Date: 20100310
  Transmission Date: 20100710
  Serious: Yes (Hospitalization)
  Sender: FDA-Public Use
  Company Number: TR-ELI_LILLY_AND_COMPANY-TR201003004820

PATIENT
  Sex: Male

DRUGS (5)
  1. HUMULIN R [Suspect]
     Indication: GESTATIONAL DIABETES
     Dosage: 4 IU, EACH MORNING
     Route: 064
     Dates: start: 20090701, end: 20090917
  2. HUMULIN R [Suspect]
     Dosage: 3 IU, OTHER
     Route: 064
     Dates: start: 20090701, end: 20090917
  3. HUMULIN R [Suspect]
     Dosage: 4 IU, EACH EVENING
     Route: 064
     Dates: start: 20090701, end: 20090917
  4. HUMULIN N [Suspect]
     Indication: GESTATIONAL DIABETES
     Dosage: 3 IU, DAILY (1/D)
     Route: 064
     Dates: start: 20090701, end: 20090917
  5. LEVOTIRON [Concomitant]
     Dosage: 0.5 D/F, DAILY (1/D)
     Route: 064
     Dates: start: 20090718

REACTIONS (2)
  - DRUG EXPOSURE DURING PREGNANCY [None]
  - HYPOGLYCAEMIA NEONATAL [None]
